FAERS Safety Report 12679690 (Version 1)
Quarter: 2016Q3

REPORT INFORMATION
  Report Type: Spontaneous
  Country: RU (occurrence: RU)
  Receive Date: 20160824
  Receipt Date: 20160824
  Transmission Date: 20161109
  Serious: Yes (Hospitalization)
  Sender: FDA-Public Use
  Company Number: RU-ASTRAZENECA-2016SE89582

PATIENT
  Age: 5 Year
  Sex: Female

DRUGS (3)
  1. MUCOLYTICS [Concomitant]
     Active Substance: UNSPECIFIED INGREDIENT
  2. PULMICORT TURBUHALER [Suspect]
     Active Substance: BUDESONIDE
     Indication: OBLITERATIVE BRONCHIOLITIS
     Route: 055
  3. ANTIVIRALS [Concomitant]
     Active Substance: UNSPECIFIED INGREDIENT

REACTIONS (3)
  - Obliterative bronchiolitis [Not Recovered/Not Resolved]
  - Product use issue [Unknown]
  - Off label use [Unknown]
